FAERS Safety Report 9636559 (Version 1)
Quarter: 2013Q4

REPORT INFORMATION
  Report Type: Spontaneous
  Country: US (occurrence: US)
  Receive Date: 20131021
  Receipt Date: 20131021
  Transmission Date: 20140711
  Serious: Yes (Other)
  Sender: FDA-Public Use
  Company Number: PHHY2013US114084

PATIENT
  Age: 52 Year
  Sex: Male

DRUGS (5)
  1. HEPARIN [Suspect]
     Indication: ATRIAL FIBRILLATION
     Dosage: 4700 U (80 UNITS/KG)
  2. FUROSEMIDE [Concomitant]
     Indication: PULMONARY OEDEMA
     Dosage: 20 MG, UNK
  3. METOPROLOL TARTRATE [Concomitant]
     Indication: TACHYCARDIA
     Dosage: 10 MG, UNK
     Route: 042
  4. HYDROCORTISONE [Concomitant]
     Dosage: 100 MG, Q8H
     Route: 042
  5. METHIMAZOLE [Concomitant]
     Indication: THYROTOXIC CRISIS
     Dosage: 20 MG, Q6H
     Route: 048

REACTIONS (1)
  - Hyperkalaemia [Recovered/Resolved]
